FAERS Safety Report 18522854 (Version 2)
Quarter: 2020Q4

REPORT INFORMATION
  Report Type: Spontaneous
  Country: CN (occurrence: CN)
  Receive Date: 20201119
  Receipt Date: 20201222
  Transmission Date: 20210114
  Serious: Yes (Other)
  Sender: FDA-Public Use
  Company Number: CN-PFIZER INC-2020452461

PATIENT
  Age: 70 Year
  Sex: Female

DRUGS (6)
  1. OSELTAMIVIR [Interacting]
     Active Substance: OSELTAMIVIR
     Indication: SPUTUM CULTURE POSITIVE
     Dosage: UNK
  2. SULPERAZON [Interacting]
     Active Substance: CEFOPERAZONE SODIUM\SULBACTAM SODIUM
     Indication: BACTERIAL TEST POSITIVE
  3. DIFLUCAN [Interacting]
     Active Substance: FLUCONAZOLE
     Indication: BACTERIAL TEST POSITIVE
  4. OSELTAMIVIR [Interacting]
     Active Substance: OSELTAMIVIR
     Indication: BACTERIAL TEST POSITIVE
  5. SULPERAZON [Interacting]
     Active Substance: CEFOPERAZONE SODIUM\SULBACTAM SODIUM
     Indication: FUNGAL TEST POSITIVE
     Dosage: 1.5 G, 3X/DAY (1.5GQ8)
  6. DIFLUCAN [Suspect]
     Active Substance: FLUCONAZOLE
     Indication: SPUTUM CULTURE POSITIVE
     Dosage: 200 MG, DAILY (100 ML)
     Route: 042

REACTIONS (3)
  - Drug ineffective [Not Recovered/Not Resolved]
  - Inhibitory drug interaction [Not Recovered/Not Resolved]
  - Off label use [Unknown]
